FAERS Safety Report 12389149 (Version 1)
Quarter: 2016Q2

REPORT INFORMATION
  Report Type: Spontaneous
  Country: US (occurrence: US)
  Receive Date: 20160520
  Receipt Date: 20160520
  Transmission Date: 20160815
  Serious: Yes (Life-Threatening, Hospitalization, Other)
  Sender: FDA-Public Use
  Company Number: US-MDT-ADR-2015-02288

PATIENT
  Age: 71 Year
  Sex: Male

DRUGS (7)
  1. LIORESAL [Suspect]
     Active Substance: BACLOFEN
     Dosage: 96 MCG/DAY
     Route: 037
     Dates: end: 20151125
  2. BACLOFEN. [Suspect]
     Active Substance: BACLOFEN
  3. LIORESAL [Suspect]
     Active Substance: BACLOFEN
     Dosage: 999.3 MCG/DAY
     Route: 037
     Dates: start: 20151125
  4. GABAPENTIN. [Suspect]
     Active Substance: GABAPENTIN
  5. BUPROPRION [Suspect]
     Active Substance: BUPROPION
  6. BACLOFEN. [Suspect]
     Active Substance: BACLOFEN
     Dosage: 75.4 MCG/DAY
     Route: 037
     Dates: end: 20151208
  7. BACLOFEN. [Suspect]
     Active Substance: BACLOFEN
     Dosage: 82.1 MCG/DAY
     Route: 037
     Dates: start: 20151208

REACTIONS (5)
  - Sedation [Recovering/Resolving]
  - Accidental overdose [None]
  - Unresponsive to stimuli [Recovering/Resolving]
  - Incorrect drug administration rate [Recovering/Resolving]
  - Overdose [Recovering/Resolving]

NARRATIVE: CASE EVENT DATE: 20151125
